FAERS Safety Report 13678968 (Version 1)
Quarter: 2017Q2

REPORT INFORMATION
  Report Type: Report from Study
  Country: None (occurrence: US)
  Receive Date: 20170622
  Receipt Date: 20170622
  Transmission Date: 20170830
  Serious: Yes (Other)
  Sender: FDA-Public Use
  Company Number: US-ABBVIE-17K-163-2011943-00

PATIENT
  Age: 52 Year
  Sex: Female

DRUGS (2)
  1. HUMIRA [Suspect]
     Active Substance: ADALIMUMAB
     Indication: PSORIATIC ARTHROPATHY
     Route: 058
     Dates: start: 20151110, end: 2016
  2. HUMIRA [Suspect]
     Active Substance: ADALIMUMAB
     Route: 058
     Dates: start: 201606, end: 201701

REACTIONS (19)
  - Skin laxity [Not Recovered/Not Resolved]
  - Contusion [Not Recovered/Not Resolved]
  - Hand deformity [Unknown]
  - Nail disorder [Not Recovered/Not Resolved]
  - Arthralgia [Recovered/Resolved]
  - Balance disorder [Not Recovered/Not Resolved]
  - Influenza [Recovered/Resolved]
  - Nausea [Recovered/Resolved]
  - Urinary tract infection [Recovered/Resolved]
  - Injection site bruising [Not Recovered/Not Resolved]
  - Skin atrophy [Not Recovered/Not Resolved]
  - Visual impairment [Unknown]
  - Respiratory tract congestion [Recovered/Resolved]
  - Injection site nodule [Not Recovered/Not Resolved]
  - Ingrowing nail [Not Recovered/Not Resolved]
  - Brain stem syndrome [Not Recovered/Not Resolved]
  - Anxiety [Unknown]
  - Injection site pain [Recovered/Resolved]
  - Hepatitis [Not Recovered/Not Resolved]

NARRATIVE: CASE EVENT DATE: 201511
